FAERS Safety Report 5982236-1 (Version None)
Quarter: 2008Q4

REPORT INFORMATION
  Report Type: 
  Country: None (occurrence: None)
  Receive Date: 20081208
  Receipt Date: 20081203
  Transmission Date: 20090506
  Serious: Yes (Other)
  Sender: FDA-Public Use
  Company Number: DK-ASTRAZENECA-2008SE04576

PATIENT
  Sex: Male
  Weight: 83 kg

DRUGS (12)
  1. ZOLADEX [Suspect]
     Indication: PROSTATE CANCER
     Dosage: GIVEN EVERY THREE MONTHS
     Route: 058
     Dates: start: 20060101
  2. ANTEPSIN [Concomitant]
     Indication: GASTROOESOPHAGEAL REFLUX DISEASE
  3. LANZOPRAZOL [Concomitant]
     Indication: GASTROOESOPHAGEAL REFLUX DISEASE
  4. BETOLVEX [Concomitant]
     Indication: VITAMIN B12 DEFICIENCY
  5. CETIRIZIN [Concomitant]
     Indication: HYPERSENSITIVITY
  6. SIFROL [Concomitant]
     Indication: RESTLESS LEGS SYNDROME
  7. CORODIL [Concomitant]
     Indication: BLOOD PRESSURE
  8. SINALFA [Concomitant]
     Indication: DYSURIA
  9. GLUCOSAMIN [Concomitant]
     Indication: MUSCULOSKELETAL PAIN
  10. PREDNISONE [Concomitant]
     Indication: POLYMYOSITIS
  11. TODOLAC [Concomitant]
     Indication: MUSCULOSKELETAL PAIN
  12. ACETAMINOPHEN [Concomitant]
     Indication: PAIN

REACTIONS (9)
  - BACK PAIN [None]
  - DIZZINESS [None]
  - HEART RATE INCREASED [None]
  - HYPERHIDROSIS [None]
  - HYPOACUSIS [None]
  - LABILE BLOOD PRESSURE [None]
  - PAIN IN EXTREMITY [None]
  - RASH [None]
  - TESTICULAR PAIN [None]
